FAERS Safety Report 4498471-8 (Version None)
Quarter: 2004Q4

REPORT INFORMATION
  Report Type: 
  Country: None (occurrence: None)
  Receive Date: 20041105
  Receipt Date: 20041022
  Transmission Date: 20050328
  Serious: Yes (Other)
  Sender: FDA-Public Use
  Company Number: 209743

PATIENT
  Age: 59 Year
  Sex: Female

DRUGS (10)
  1. HERCEPTIN [Suspect]
     Indication: BREAST CANCER METASTATIC
     Dosage: SEE IMAGE
     Route: 042
     Dates: start: 20030624, end: 20030624
  2. HERCEPTIN [Suspect]
     Indication: BREAST CANCER METASTATIC
     Dosage: SEE IMAGE
     Route: 042
     Dates: start: 20030630, end: 20040621
  3. NAVELBINE [Suspect]
     Dosage: 25 MG/M2, INTRAVENOUS
     Route: 042
     Dates: start: 20030623, end: 20040621
  4. LOXONIN (LOXPROFEN SODIUM) [Concomitant]
  5. CYTOTEC [Concomitant]
  6. ALOSENN [Concomitant]
  7. MEDICON (DEXTROMETHORPHAN HYDROBROMIDE) [Concomitant]
  8. PSYLLIUM HUSK (PSYLLIUM HUSK) [Concomitant]
  9. SENEGA (SENEGA) [Concomitant]
  10. METHYLEPHEDRINE (METHYLEPHEDRINE) [Concomitant]

REACTIONS (1)
  - NEUTROPHIL COUNT DECREASED [None]
